FAERS Safety Report 10017083 (Version 1)
Quarter: 2014Q1

REPORT INFORMATION
  Report Type: Spontaneous
  Country: US (occurrence: US)
  Receive Date: 20140318
  Receipt Date: 20140318
  Transmission Date: 20141002
  Serious: Yes (Other)
  Sender: FDA-Public Use
  Company Number: US-BIOGENIDEC-2014BI023066

PATIENT
  Sex: Female

DRUGS (1)
  1. TECFIDERA [Suspect]
     Indication: MULTIPLE SCLEROSIS
     Route: 048
     Dates: start: 20130913, end: 20140304

REACTIONS (4)
  - Cardiac failure congestive [Unknown]
  - Gastric disorder [Unknown]
  - Palpitations [Unknown]
  - Diabetes mellitus [Unknown]
